FAERS Safety Report 9170337 (Version 1)
Quarter: 2013Q1

REPORT INFORMATION
  Report Type: Spontaneous
  Country: JP (occurrence: JP)
  Receive Date: 20130319
  Receipt Date: 20130319
  Transmission Date: 20140127
  Serious: Yes (Other)
  Sender: FDA-Public Use
  Company Number: JP-SANOFI-AVENTIS-2013SA024238

PATIENT
  Sex: 0

DRUGS (3)
  1. LANTUS [Suspect]
     Indication: PRODUCT USED FOR UNKNOWN INDICATION
     Route: 058
  2. BASEN [Concomitant]
     Route: 048
  3. INSULIN [Concomitant]
     Route: 058

REACTIONS (2)
  - Retinopathy [Unknown]
  - Condition aggravated [Unknown]
